FAERS Safety Report 9622468 (Version 2)
Quarter: 2013Q4

REPORT INFORMATION
  Report Type: Spontaneous
  Country: US (occurrence: US)
  Receive Date: 20131015
  Receipt Date: 20131015
  Transmission Date: 20140711
  Serious: No
  Sender: FDA-Public Use
  Company Number: US-PURDUE-USA-2012-0086600

PATIENT
  Sex: Male
  Weight: 117.91 kg

DRUGS (3)
  1. BUTRANS [Suspect]
     Indication: PAIN
     Dosage: 10 MCG/HR, UNK
     Route: 062
     Dates: start: 20111118, end: 201112
  2. NORCO [Suspect]
     Indication: PAIN
     Dosage: 10/325 Q4-6H PRN
  3. LORTAB                             /00607101/ [Concomitant]
     Indication: BREAKTHROUGH PAIN
     Dosage: UNK

REACTIONS (3)
  - Inhibitory drug interaction [Recovered/Resolved]
  - Breakthrough pain [Unknown]
  - Back pain [Recovered/Resolved]
